FAERS Safety Report 18728307 (Version 1)
Quarter: 2021Q1

REPORT INFORMATION
  Report Type: Spontaneous
  Country: US (occurrence: US)
  Receive Date: 20210111
  Receipt Date: 20210111
  Transmission Date: 20210419
  Serious: No
  Sender: FDA-Public Use
  Company Number: US-009507513-2101USA000888

PATIENT
  Sex: Male

DRUGS (1)
  1. TRUSOPT [Suspect]
     Active Substance: DORZOLAMIDE HYDROCHLORIDE
     Indication: GLAUCOMA
     Dosage: UNK
     Dates: start: 1991

REACTIONS (2)
  - Hordeolum [Recovered/Resolved]
  - Reaction to preservatives [Unknown]

NARRATIVE: CASE EVENT DATE: 1991
